FAERS Safety Report 10993493 (Version 1)
Quarter: 2015Q2

REPORT INFORMATION
  Report Type: Spontaneous
  Country: US (occurrence: None)
  Receive Date: 20150406
  Receipt Date: 20150406
  Transmission Date: 20150821
  Serious: Yes (Other)
  Sender: FDA-Public Use
  Company Number: None

PATIENT
  Age: 39 Year
  Sex: Female
  Weight: 52.16 kg

DRUGS (7)
  1. ALEVE [Concomitant]
     Active Substance: NAPROXEN SODIUM
  2. AMPHETAMINE SALT [Suspect]
     Active Substance: AMPHETAMINE ASPARTATE\AMPHETAMINE SULFATE\DEXTROAMPHETAMINE SACCHARATE\DEXTROAMPHETAMINE SULFATE
     Indication: ATTENTION DEFICIT/HYPERACTIVITY DISORDER
     Dosage: 1, THREE TIMES DAILY, TAKEN BY MOUTH
     Route: 048
     Dates: start: 20150329, end: 20150405
  3. AMPHETAMINE SALT [Suspect]
     Active Substance: AMPHETAMINE ASPARTATE\AMPHETAMINE SULFATE\DEXTROAMPHETAMINE SACCHARATE\DEXTROAMPHETAMINE SULFATE
     Indication: AUTOIMMUNE DISORDER
     Dosage: 1, THREE TIMES DAILY, TAKEN BY MOUTH
     Route: 048
     Dates: start: 20150329, end: 20150405
  4. AMPHETAMINE [Concomitant]
     Active Substance: AMPHETAMINE
  5. AMPHETAMINE SALT [Suspect]
     Active Substance: AMPHETAMINE ASPARTATE\AMPHETAMINE SULFATE\DEXTROAMPHETAMINE SACCHARATE\DEXTROAMPHETAMINE SULFATE
     Indication: RHEUMATIC DISORDER
     Dosage: 1, THREE TIMES DAILY, TAKEN BY MOUTH
     Route: 048
     Dates: start: 20150329, end: 20150405
  6. AMPHETAMINE SALT [Suspect]
     Active Substance: AMPHETAMINE ASPARTATE\AMPHETAMINE SULFATE\DEXTROAMPHETAMINE SACCHARATE\DEXTROAMPHETAMINE SULFATE
     Indication: NARCOLEPSY
     Dosage: 1, THREE TIMES DAILY, TAKEN BY MOUTH
     Route: 048
     Dates: start: 20150329, end: 20150405
  7. DYAZIDE [Concomitant]
     Active Substance: HYDROCHLOROTHIAZIDE\TRIAMTERENE

REACTIONS (9)
  - Headache [None]
  - Pyrexia [None]
  - Nausea [None]
  - Tic [None]
  - Irritability [None]
  - Depressed mood [None]
  - Fatigue [None]
  - Abdominal pain [None]
  - Dizziness [None]

NARRATIVE: CASE EVENT DATE: 20150329
